FAERS Safety Report 9680599 (Version 2)
Quarter: 2013Q4

REPORT INFORMATION
  Report Type: Spontaneous
  Country: US (occurrence: US)
  Receive Date: 20131111
  Receipt Date: 20131111
  Transmission Date: 20140711
  Serious: No
  Sender: FDA-Public Use
  Company Number: US-PFIZER INC-2013297397

PATIENT
  Age: 56 Year
  Sex: Female

DRUGS (3)
  1. METHOCARBAMOL [Suspect]
     Dosage: UNK
     Route: 048
  2. PROPANOLOL HCL [Suspect]
     Dosage: UNK
     Route: 048
  3. TOPAMAX [Suspect]
     Dosage: UNK
     Route: 048

REACTIONS (3)
  - Drug hypersensitivity [Unknown]
  - Vomiting [Unknown]
  - Aspartate aminotransferase increased [Unknown]
